FAERS Safety Report 14344943 (Version 3)
Quarter: 2018Q1

REPORT INFORMATION
  Report Type: Spontaneous
  Country: JP (occurrence: JP)
  Receive Date: 20180103
  Receipt Date: 20180227
  Transmission Date: 20180509
  Serious: Yes (Hospitalization)
  Sender: FDA-Public Use
  Company Number: JP-ROCHE-2048136

PATIENT
  Age: 56 Year
  Sex: Female

DRUGS (3)
  1. ACTEMRA [Suspect]
     Active Substance: TOCILIZUMAB
     Route: 058
     Dates: end: 20171206
  2. CANDESARTAN. [Concomitant]
     Active Substance: CANDESARTAN
     Dosage: DOSAGE IS UNCERTAIN.
     Route: 065
     Dates: start: 20150619, end: 20171206
  3. ACTEMRA [Suspect]
     Active Substance: TOCILIZUMAB
     Indication: RHEUMATOID ARTHRITIS
     Route: 058
     Dates: start: 20150930

REACTIONS (5)
  - Aspartate aminotransferase increased [Unknown]
  - Gallbladder cancer [Unknown]
  - C-reactive protein increased [Unknown]
  - Alanine aminotransferase increased [Unknown]
  - Off label use [Unknown]

NARRATIVE: CASE EVENT DATE: 20171129
